FAERS Safety Report 7173892-3 (Version None)
Quarter: 2010Q4

REPORT INFORMATION
  Report Type: 
  Country: None (occurrence: None)
  Receive Date: 20101219
  Receipt Date: 20100312
  Transmission Date: 20110411
  Serious: Yes (Other)
  Sender: FDA-Public Use
  Company Number: US-AMGEN-QUU399228

PATIENT

DRUGS (6)
  1. ENBREL [Suspect]
     Indication: PSORIATIC ARTHROPATHY
     Dosage: UNK UNK, UNK
  2. UNSPECIFIED MEDICATION [Concomitant]
     Dosage: UNK UNK, UNK
  3. SULFASALAZINE [Concomitant]
     Dosage: UNK UNK, UNK
  4. FOLIC ACID [Concomitant]
     Dosage: UNK UNK, UNK
  5. NAPROXEN [Concomitant]
     Dosage: UNK UNK, UNK
  6. METHOTREXATE [Concomitant]
     Dosage: UNK UNK, UNK

REACTIONS (1)
  - MULTIPLE MYELOMA [None]
